FAERS Safety Report 12231781 (Version 1)
Quarter: 2016Q2

REPORT INFORMATION
  Report Type: Spontaneous
  Country: None (occurrence: CO)
  Receive Date: 20160401
  Receipt Date: 20160401
  Transmission Date: 20160815
  Serious: Yes (Hospitalization)
  Sender: FDA-Public Use
  Company Number: CO-POPULATION COUNCIL, INC.-1050130

PATIENT
  Age: 18 Year
  Sex: Female

DRUGS (1)
  1. JADELLE [Suspect]
     Active Substance: LEVONORGESTREL

REACTIONS (1)
  - Subcutaneous abscess [None]

NARRATIVE: CASE EVENT DATE: 20160101
